FAERS Safety Report 7672142-9 (Version None)
Quarter: 2011Q3

REPORT INFORMATION
  Report Type: 
  Country: None (occurrence: None)
  Receive Date: 20110809
  Receipt Date: 20110616
  Transmission Date: 20111222
  Serious: Yes (Other)
  Sender: FDA-Public Use
  Company Number: US-BAYER-200825612NA

PATIENT
  Sex: Male
  Weight: 91 kg

DRUGS (27)
  1. CLONIDINE [Concomitant]
  2. ACCUPRIL [Concomitant]
  3. OPTIMARK [Suspect]
     Indication: NUCLEAR MAGNETIC RESONANCE IMAGING
  4. PROHANCE [Suspect]
     Indication: NUCLEAR MAGNETIC RESONANCE IMAGING
  5. OMNISCAN [Suspect]
     Indication: NUCLEAR MAGNETIC RESONANCE IMAGING
  6. MULTIHANCE [Suspect]
     Indication: NUCLEAR MAGNETIC RESONANCE IMAGING
  7. NOVOLIN R [Concomitant]
  8. INSULIN [INSULIN] [Concomitant]
  9. FOSRENOL [Concomitant]
  10. MAGNEVIST [Suspect]
     Dosage: UNK UNK, ONCE
     Dates: start: 20050125, end: 20050125
  11. OPTIMARK [Suspect]
     Indication: ANGIOGRAM
  12. COUMADIN [Concomitant]
  13. PROCRIT [Concomitant]
  14. MINOXIDIL [Concomitant]
  15. PROHANCE [Suspect]
     Indication: ANGIOGRAM
     Dosage: UNK UNK, ONCE
     Dates: start: 20021016, end: 20021016
  16. GADOLINIUM IN UNSPECIFIED DRUG [Suspect]
     Indication: NUCLEAR MAGNETIC RESONANCE IMAGING
     Dosage: UNK
     Dates: start: 20021105, end: 20021105
  17. TEMAZEPAM [Concomitant]
  18. PHOSLO [Concomitant]
  19. RENAL [VITAMINS NOS] [Concomitant]
  20. OMNISCAN [Suspect]
     Indication: ANGIOGRAM
  21. MULTIHANCE [Suspect]
     Indication: ANGIOGRAM
  22. RENAGEL [Concomitant]
  23. DIATX [Concomitant]
  24. MAGNEVIST [Suspect]
     Indication: ANGIOGRAM
     Dosage: 15 ML, ONCE
     Route: 042
     Dates: start: 20021016, end: 20021016
  25. MAGNEVIST [Suspect]
     Indication: NUCLEAR MAGNETIC RESONANCE IMAGING
     Dosage: UNK UNK, ONCE
     Dates: start: 20021115, end: 20021115
  26. MAGNEVIST [Suspect]
     Dosage: 19 ML, ONCE
     Dates: start: 20040716, end: 20040716
  27. LASIX [Concomitant]

REACTIONS (18)
  - NEPHROGENIC SYSTEMIC FIBROSIS [None]
  - INJURY [None]
  - ANHEDONIA [None]
  - EXTREMITY CONTRACTURE [None]
  - FRUSTRATION [None]
  - MUSCLE TIGHTNESS [None]
  - MYOSCLEROSIS [None]
  - ACTIVITIES OF DAILY LIVING IMPAIRED [None]
  - PAIN [None]
  - ANXIETY [None]
  - MUSCLE FIBROSIS [None]
  - EMOTIONAL DISTRESS [None]
  - SKIN INDURATION [None]
  - OEDEMA PERIPHERAL [None]
  - SKIN TIGHTNESS [None]
  - JOINT CONTRACTURE [None]
  - JOINT RANGE OF MOTION DECREASED [None]
  - FATIGUE [None]
